FAERS Safety Report 7934954-3 (Version None)
Quarter: 2011Q4

REPORT INFORMATION
  Report Type: 
  Country: None (occurrence: None)
  Receive Date: 20111122
  Receipt Date: 20110413
  Transmission Date: 20120403
  Serious: Yes (Hospitalization)
  Sender: FDA-Public Use
  Company Number: NL-NAPPMUNDI-GBR-2011-0008063

PATIENT
  Sex: Female
  Weight: 80 kg

DRUGS (12)
  1. METFORMIN HCL [Concomitant]
     Dosage: 500 MG, BID
     Route: 065
  2. CALCIUM CARBONATE [Concomitant]
     Dosage: 1 UNK, UNK
     Route: 065
  3. FLUTICASONE PROPIONATE/SALMETEROL [Concomitant]
     Dosage: 50 MCG/DO
     Route: 055
  4. AERIUS                             /01398501/ [Concomitant]
     Dosage: 5 MG, DAILY
     Route: 065
  5. PREDNISOLONE [Concomitant]
     Dosage: 5 MG, DAILY
     Route: 065
  6. DICLOFENAC SODIUM [Concomitant]
     Dosage: 50 MG, TID
     Route: 065
  7. BERODUAL [Concomitant]
     Dosage: 1 DF, TID
     Route: 055
  8. PAROXETINE HCL [Concomitant]
     Dosage: 10 MG, DAILY
     Route: 065
  9. MORPHINE SULFATE [Suspect]
     Indication: PAIN
     Dosage: 10 MG, BID
     Route: 065
     Dates: start: 20110218, end: 20110222
  10. GLIMEPIRIDE [Concomitant]
     Dosage: 1 MG, DAILY
     Route: 065
  11. OMEPRAZOLE [Concomitant]
     Dosage: 20 MG, UNK
     Route: 065
  12. SPIRIVA [Concomitant]
     Dosage: 18 MCG, DAILY
     Route: 055

REACTIONS (1)
  - DELIRIUM [None]
